FAERS Safety Report 9520818 (Version 1)
Quarter: 2013Q3

REPORT INFORMATION
  Report Type: Spontaneous
  Country: DE (occurrence: None)
  Receive Date: 20130911
  Receipt Date: 20130911
  Transmission Date: 20140515
  Serious: Yes (Death, Hospitalization)
  Sender: FDA-Public Use
  Company Number: ALLO20130023

PATIENT
  Age: 63 Year
  Sex: 0

DRUGS (3)
  1. ALLOPURINOL [Suspect]
     Indication: MALIGNANT MELANOMA
     Route: 048
     Dates: start: 201203, end: 2012
  2. VEMURAFENIB [Suspect]
     Indication: MALIGNANT MELANOMA
     Dates: start: 201203, end: 2012
  3. METAMIZOL (METAMIZOLE MAGNESIUM) METAMIZOLE MAGNESIUM) [Concomitant]

REACTIONS (9)
  - Leukopenia [None]
  - Fatigue [None]
  - Tachycardia [None]
  - Diarrhoea [None]
  - Nausea [None]
  - Rash maculo-papular [None]
  - Pseudomonas test positive [None]
  - Blood culture positive [None]
  - Staphylococcus test positive [None]
